FAERS Safety Report 11228166 (Version 1)
Quarter: 2015Q2

REPORT INFORMATION
  Report Type: Spontaneous
  Country: GB (occurrence: None)
  Receive Date: 20150626
  Receipt Date: 20150626
  Transmission Date: 20150821
  Serious: Yes (Hospitalization, Other)
  Sender: FDA-Public Use
  Company Number: CO-ZN-UK-2015-021

PATIENT
  Age: 59 Year
  Sex: Male

DRUGS (5)
  1. ATORVASTATIN (UNKNOWN) (ATORVASTATIN CALCIUM PROPYLENE GLYCOL SOLVATE) [Concomitant]
  2. GLICLAZIDE (UNKNOWN) [Concomitant]
     Active Substance: GLICLAZIDE
  3. RANITIDINE [Suspect]
     Active Substance: RANITIDINE\RANITIDINE HYDROCHLORIDE
     Indication: PRODUCT USED FOR UNKNOWN INDICATION
     Route: 048
  4. METFORMIN (UNKNOWN) (METFORMIN HYDROCHLORIDE, METFORMIN HYDROCHLORIDE) [Concomitant]
  5. BISOPROLOL (UNKNOWN) (BISOPROLOL FUMARATE) [Concomitant]

REACTIONS (19)
  - Atypical pneumonia [None]
  - Gastritis [None]
  - Neuropathy peripheral [None]
  - Renal impairment [None]
  - Dyspnoea [None]
  - Respiratory failure [None]
  - Pleural effusion [None]
  - Melaena [None]
  - Liver function test abnormal [None]
  - Atelectasis [None]
  - Conjunctival hyperaemia [None]
  - Atrial fibrillation [None]
  - Hyponatraemia [None]
  - Erythema multiforme [None]
  - Hypoalbuminaemia [None]
  - Left ventricular dysfunction [None]
  - Stevens-Johnson syndrome [None]
  - Eosinophil count increased [None]
  - Duodenal ulcer [None]

NARRATIVE: CASE EVENT DATE: 20150513
